FAERS Safety Report 4486451-8 (Version None)
Quarter: 2004Q4

REPORT INFORMATION
  Report Type: 
  Country: None (occurrence: None)
  Receive Date: 20041026
  Receipt Date: 20041026
  Transmission Date: 20050328
  Serious: Yes (Life-Threatening, Hospitalization)
  Sender: FDA-Public Use
  Company Number: None

PATIENT
  Sex: Male

DRUGS (1)
  1. TAXOL [Suspect]
     Dosage: INTRACORONARY STENT
     Route: 022
     Dates: start: 20041022

REACTIONS (3)
  - MYOCARDIAL INFARCTION [None]
  - STENT OCCLUSION [None]
  - THROMBOSIS [None]
